FAERS Safety Report 6421365-5 (Version None)
Quarter: 2009Q4

REPORT INFORMATION
  Report Type: 
  Country: None (occurrence: None)
  Receive Date: 20091030
  Receipt Date: 20091023
  Transmission Date: 20100525
  Serious: Yes (Other)
  Sender: FDA-Public Use
  Company Number: PHHO2009DK13137

PATIENT
  Sex: Male

DRUGS (3)
  1. ZOLEDRONATE T29581+SOLINJ+BM [Suspect]
     Dosage: 3.3 MG EVERY 3 MONTHS
     Route: 042
     Dates: start: 20061211, end: 20090827
  2. CALCIUM [Concomitant]
  3. VITAMIN D [Concomitant]

REACTIONS (2)
  - OSTEONECROSIS [None]
  - PAIN IN JAW [None]
